FAERS Safety Report 5151596-6 (Version None)
Quarter: 2006Q4

REPORT INFORMATION
  Report Type: 
  Country: None (occurrence: None)
  Receive Date: 20061115
  Receipt Date: 20060112
  Transmission Date: 20070319
  Serious: No
  Sender: FDA-Public Use
  Company Number: US-BRISTOL-MYERS SQUIBB COMPANY-13246178

PATIENT
  Sex: Male

DRUGS (3)
  1. SUSTIVA [Suspect]
     Indication: HIV INFECTION
  2. ZETIA [Concomitant]
     Indication: HYPERLIPIDAEMIA
  3. LIPITOR [Concomitant]
     Indication: HYPERLIPIDAEMIA

REACTIONS (1)
  - GAMMA-GLUTAMYLTRANSFERASE INCREASED [None]
